FAERS Safety Report 6643122-7 (Version None)
Quarter: 2010Q1

REPORT INFORMATION
  Report Type: 
  Country: None (occurrence: None)
  Receive Date: 20100319
  Receipt Date: 20100308
  Transmission Date: 20100710
  Serious: Yes (Hospitalization)
  Sender: FDA-Public Use
  Company Number: PHHY2009JP49950

PATIENT
  Sex: Male
  Weight: 45 kg

DRUGS (5)
  1. ICL670A ICL+DISTAB [Suspect]
     Indication: IRON OVERLOAD
     Dosage: 875 MG/DAY
     Route: 048
     Dates: start: 20091008, end: 20091015
  2. PREDONINE [Suspect]
     Dosage: UNK
     Dates: end: 20091209
  3. PROGRAF [Concomitant]
     Dosage: 1 MG, UNK
     Route: 048
     Dates: start: 19990911
  4. ALLELOCK [Concomitant]
  5. FAMOTIDINE [Concomitant]

REACTIONS (11)
  - BLOOD BILIRUBIN INCREASED [None]
  - C-REACTIVE PROTEIN INCREASED [None]
  - ERYTHEMA [None]
  - ERYTHEMA OF EYELID [None]
  - EYE INFLAMMATION [None]
  - ORAL MUCOSAL ERYTHEMA [None]
  - OROPHARYNGEAL PAIN [None]
  - PYREXIA [None]
  - RASH [None]
  - STEVENS-JOHNSON SYNDROME [None]
  - WHITE BLOOD CELL COUNT INCREASED [None]
